FAERS Safety Report 23434200 (Version 1)
Quarter: 2024Q1

REPORT INFORMATION
  Report Type: Spontaneous
  Country: SK (occurrence: SK)
  Receive Date: 20240123
  Receipt Date: 20240123
  Transmission Date: 20240409
  Serious: Yes (Hospitalization, Other)
  Sender: FDA-Public Use
  Company Number: SK-TEVA-VS-3135125

PATIENT
  Age: 62 Year
  Sex: Female

DRUGS (6)
  1. QUETIAPINE [Suspect]
     Active Substance: QUETIAPINE
     Indication: Schizophrenia
     Dosage: UNK
     Route: 065
     Dates: start: 2012
  2. ARIPIPRAZOLE [Suspect]
     Active Substance: ARIPIPRAZOLE
     Indication: Schizophrenia
     Dosage: 5 MILLIGRAM, QD
     Route: 048
     Dates: start: 202201
  3. VENLAFAXINE [Suspect]
     Active Substance: VENLAFAXINE HYDROCHLORIDE
     Indication: Schizophrenia
     Dosage: 150 MILLIGRAM, QD
     Route: 065
  4. OLANZAPINE [Suspect]
     Active Substance: OLANZAPINE
     Indication: Schizophrenia
     Dosage: 15 MILLIGRAM, QD
     Route: 048
     Dates: start: 2022
  5. TRAZODONE [Concomitant]
     Active Substance: TRAZODONE HYDROCHLORIDE
     Dosage: 150 MILLIGRAM, QD
     Route: 065
  6. VINPOCETINE [Concomitant]
     Active Substance: VINPOCETINE
     Indication: Product used for unknown indication
     Dosage: 30 MILLIGRAM
     Route: 065

REACTIONS (18)
  - Suicidal ideation [Recovered/Resolved]
  - Hallucination, auditory [Unknown]
  - Autism spectrum disorder [Unknown]
  - Mental impairment [Unknown]
  - Schizophrenia [Unknown]
  - Cognitive disorder [Unknown]
  - Toxicity to various agents [Unknown]
  - Sedation [Unknown]
  - Paranoia [Unknown]
  - Aggression [Unknown]
  - Tension [Unknown]
  - Thinking abnormal [Recovering/Resolving]
  - Illusion [Unknown]
  - Disturbance in attention [Unknown]
  - Delusion [Unknown]
  - Drug ineffective [Unknown]
  - Treatment noncompliance [Unknown]
  - Self-medication [Unknown]

NARRATIVE: CASE EVENT DATE: 20220101
